FAERS Safety Report 8783294 (Version 4)
Quarter: 2013Q3

REPORT INFORMATION
  Report Type: Spontaneous
  Country: JP (occurrence: JP)
  Receive Date: 20120913
  Receipt Date: 20130930
  Transmission Date: 20140515
  Serious: Yes (Life-Threatening, Other)
  Sender: FDA-Public Use
  Company Number: JP-009507513-1208JPN004769

PATIENT
  Age: 42 Year
  Sex: Male
  Weight: 70 kg

DRUGS (7)
  1. BRIDION [Suspect]
     Indication: NEUROMUSCULAR BLOCKADE REVERSAL
     Dosage: 140 MG, QD, ROUTE- IV UNSPECIFIED
     Route: 042
     Dates: start: 20120804, end: 20120804
  2. BRIDION [Suspect]
     Dosage: 260 MG, ONCE
     Route: 042
     Dates: start: 20120804, end: 20120804
  3. ESLAX [Concomitant]
     Indication: NEUROMUSCULAR BLOCKING THERAPY
     Dosage: DAILY DOSE UNKNOWN
     Route: 008
     Dates: start: 20120804, end: 20120804
  4. ULTIVA [Concomitant]
     Dosage: DAILY DOSE UNKNOWN
     Route: 042
     Dates: start: 20120804, end: 20120804
  5. PROPOFOL [Concomitant]
     Dosage: DAILY DOSE UNKNOWN
     Route: 042
     Dates: start: 20120804, end: 20120804
  6. DROPERIDOL [Concomitant]
     Dosage: DAILY DOSE UNKNOWN
     Route: 065
     Dates: start: 20120804, end: 20120804
  7. ANAPEINE [Concomitant]
     Dosage: UNK
     Route: 008
     Dates: start: 20120804, end: 20120804

REACTIONS (2)
  - Laryngospasm [Recovered/Resolved]
  - Pulmonary oedema [Recovered/Resolved]
